FAERS Safety Report 4593879-4 (Version None)
Quarter: 2005Q1

REPORT INFORMATION
  Report Type: 
  Country: None (occurrence: None)
  Receive Date: 20050223
  Receipt Date: 20040824
  Transmission Date: 20050727
  Serious: Yes (Other)
  Sender: FDA-Public Use
  Company Number: 200510137BBE

PATIENT
  Sex: Male

DRUGS (2)
  1. KOATE [Suspect]
     Indication: FACTOR VIII DEFICIENCY
     Dosage: NI
     Dates: start: 19780101, end: 19900101
  2. BAXTER/HYLAND (FACTOR VIII) [Suspect]
     Dosage: NI
     Dates: start: 19780101, end: 19900101

REACTIONS (2)
  - HEPATITIS C VIRUS [None]
  - PHARMACEUTICAL PRODUCT COMPLAINT [None]
